FAERS Safety Report 20523780 (Version 1)
Quarter: 2022Q1

REPORT INFORMATION
  Report Type: Spontaneous
  Country: US (occurrence: US)
  Receive Date: 20220228
  Receipt Date: 20220228
  Transmission Date: 20220423
  Serious: Yes (Life-Threatening)
  Sender: FDA-Public Use
  Company Number: US-IGSA-BIG0016415

PATIENT
  Age: 58 Year
  Sex: Male
  Weight: 140 kg

DRUGS (22)
  1. PROLASTIN-C LIQUID [Suspect]
     Active Substance: .ALPHA.1-PROTEINASE INHIBITOR HUMAN
     Indication: Alpha-1 antitrypsin deficiency
     Dosage: 8400 MILLIGRAM, Q.WK.
     Route: 042
     Dates: start: 20211019
  2. PROLASTIN-C LIQUID [Suspect]
     Active Substance: .ALPHA.1-PROTEINASE INHIBITOR HUMAN
     Dosage: 8400 MILLIGRAM, Q.WK.
     Route: 042
     Dates: start: 20211026
  3. PROLASTIN-C LIQUID [Suspect]
     Active Substance: .ALPHA.1-PROTEINASE INHIBITOR HUMAN
     Dosage: 8400 MILLIGRAM, Q.WK.
     Route: 042
     Dates: start: 20190506
  4. PROLASTIN-C LIQUID [Suspect]
     Active Substance: .ALPHA.1-PROTEINASE INHIBITOR HUMAN
     Dosage: 8400 MILLIGRAM, Q.WK.
     Route: 042
     Dates: start: 20150901
  5. VITAMIN D NOS [Concomitant]
     Active Substance: VITAMIN D NOS
  6. OXYBUTYNIN CHLORIDE [Concomitant]
     Active Substance: OXYBUTYNIN CHLORIDE
  7. NAPROXEN [Concomitant]
     Active Substance: NAPROXEN
  8. ZOCOR [Concomitant]
     Active Substance: SIMVASTATIN
  9. VITAMIN C [Concomitant]
     Active Substance: ASCORBIC ACID
  10. RANEXA [Concomitant]
     Active Substance: RANOLAZINE
  11. PRILOSEC [Concomitant]
     Active Substance: OMEPRAZOLE MAGNESIUM
  12. PLAVIX [Concomitant]
     Active Substance: CLOPIDOGREL BISULFATE
  13. VITAMINS [Concomitant]
     Active Substance: VITAMINS
  14. METFORMIN HYDROCHLORIDE [Concomitant]
     Active Substance: METFORMIN HYDROCHLORIDE
  15. LOPRESSOR [Concomitant]
     Active Substance: METOPROLOL TARTRATE
  16. LOPID [Concomitant]
     Active Substance: GEMFIBROZIL
  17. IRON [Concomitant]
     Active Substance: IRON
  18. IMDUR [Concomitant]
     Active Substance: ISOSORBIDE MONONITRATE
  19. GARLIC [ALLIUM SATIVUM BULB] [Concomitant]
  20. MORNIFLUMATE [Concomitant]
     Active Substance: MORNIFLUMATE
  21. FISH OIL [Concomitant]
     Active Substance: FISH OIL
  22. ASPIRIN [Concomitant]
     Active Substance: ASPIRIN

REACTIONS (5)
  - Lip swelling [Not Recovered/Not Resolved]
  - Urticaria [Not Recovered/Not Resolved]
  - Dyspnoea [Not Recovered/Not Resolved]
  - Heart rate increased [Not Recovered/Not Resolved]
  - Eye swelling [Not Recovered/Not Resolved]

NARRATIVE: CASE EVENT DATE: 20211019
